FAERS Safety Report 8856236 (Version 1)
Quarter: 2012Q4

REPORT INFORMATION
  Report Type: 
  Country: US (occurrence: US)
  Receive Date: 20121023
  Receipt Date: 20121023
  Transmission Date: 20130627
  Serious: No
  Sender: FDA-Public Use
  Company Number: US-AMGEN-USASP2012057651

PATIENT
  Sex: Female

DRUGS (13)
  1. ENBREL [Suspect]
     Indication: PRODUCT USED FOR UNKNOWN INDICATION
     Dosage: 50 mg, qwk
     Route: 058
  2. SERTRALINE [Concomitant]
     Dosage: 25 mg, UNK
  3. METOPROLOL [Concomitant]
     Dosage: 25 mg, UNK
  4. PREMARIN [Concomitant]
     Dosage: 0.3 mg, UNK
  5. PREVACID [Concomitant]
     Dosage: 30 mg, UNK
  6. MEDROXYPROGESTERON [Concomitant]
     Dosage: 2.5 mg, UNK
  7. ISOSORB MONO [Concomitant]
     Dosage: 30 mg, UNK
  8. DAYPRO [Concomitant]
     Dosage: 600 mg, UNK
  9. LIPITOR [Concomitant]
     Dosage: 10 mg, UNK
  10. ASPIRIN [Concomitant]
     Dosage: 81 mg, UNK
  11. FISH OIL [Concomitant]
     Dosage: UNK
  12. CALCIUM [Concomitant]
     Dosage: 500 mg, UNK
  13. VIT D [Concomitant]
     Dosage: UNK

REACTIONS (2)
  - Injection site pruritus [Unknown]
  - Injection site erythema [Unknown]
